FAERS Safety Report 5716465-9 (Version None)
Quarter: 2008Q2

REPORT INFORMATION
  Report Type: 
  Country: None (occurrence: None)
  Receive Date: 20080424
  Receipt Date: 20080417
  Transmission Date: 20081010
  Serious: Yes (Hospitalization)
  Sender: FDA-Public Use
  Company Number: CH-ABBOTT-08P-151-0447833-00

PATIENT
  Age: 50 Year
  Sex: Male

DRUGS (5)
  1. KALETRA [Suspect]
     Indication: HIV INFECTION
  2. PYRIMETHAMINE TAB [Suspect]
     Indication: TOXOPLASMOSIS
     Route: 048
  3. TENOFOVIR DISOPROXIL FUMARATE [Suspect]
     Indication: DRUG USE FOR UNKNOWN INDICATION
  4. ABACAVIR SULFATE [Suspect]
     Indication: HODGKIN'S DISEASE
     Dates: start: 20071001, end: 20071001
  5. CLINDAMYCIN HCL [Concomitant]
     Indication: DRUG USE FOR UNKNOWN INDICATION
     Route: 048

REACTIONS (3)
  - FOLATE DEFICIENCY [None]
  - PANCYTOPENIA [None]
  - PYREXIA [None]
